FAERS Safety Report 12262919 (Version 1)
Quarter: 2016Q2

REPORT INFORMATION
  Report Type: Spontaneous
  Country: US (occurrence: US)
  Receive Date: 20160413
  Receipt Date: 20160413
  Transmission Date: 20160815
  Serious: Yes (Other)
  Sender: FDA-Public Use
  Company Number: US-LPDUSPRD-20160309

PATIENT
  Age: 67 Year
  Sex: Female

DRUGS (3)
  1. ASPIRIN. [Concomitant]
     Active Substance: ASPIRIN
     Dosage: 1 TABLET AT NIGHT
     Route: 048
     Dates: start: 2006
  2. LOVENOX [Concomitant]
     Active Substance: ENOXAPARIN SODIUM
     Dosage: USE AS NEEDED
     Route: 058
     Dates: start: 2006
  3. CYANOCOBALAMIN INJECTION, USP (0031-25) [Suspect]
     Active Substance: CYANOCOBALAMIN
     Dosage: 1000 MCG MONTHLY
     Route: 030
     Dates: start: 2005, end: 201512

REACTIONS (1)
  - Deep vein thrombosis [Unknown]

NARRATIVE: CASE EVENT DATE: 201512
